FAERS Safety Report 12896953 (Version 1)
Quarter: 2016Q4

REPORT INFORMATION
  Report Type: Spontaneous
  Country: US (occurrence: US)
  Receive Date: 20161031
  Receipt Date: 20161031
  Transmission Date: 20170207
  Serious: No
  Sender: FDA-Public Use
  Company Number: US-PFIZER INC-2016503356

PATIENT
  Age: 68 Year
  Sex: Female
  Weight: 70.3 kg

DRUGS (1)
  1. GABAPENTIN. [Suspect]
     Active Substance: GABAPENTIN
     Indication: BACK DISORDER
     Dosage: 300 MG, UNK
     Dates: start: 201510, end: 2016

REACTIONS (5)
  - Product use issue [Unknown]
  - Gait disturbance [Unknown]
  - Activities of daily living impaired [Unknown]
  - Lethargy [Unknown]
  - Dysstasia [Unknown]

NARRATIVE: CASE EVENT DATE: 201510
